FAERS Safety Report 6454864-0 (Version None)
Quarter: 2009Q4

REPORT INFORMATION
  Report Type: 
  Country: None (occurrence: None)
  Receive Date: 20091124
  Receipt Date: 20091119
  Transmission Date: 20100525
  Serious: Yes (Other)
  Sender: FDA-Public Use
  Company Number: US-GENENTECH-294679

PATIENT

DRUGS (1)
  1. AVASTIN [Suspect]
     Indication: NEPHROBLASTOMA
     Route: 042

REACTIONS (1)
  - HAEMOPTYSIS [None]
